FAERS Safety Report 5060625-X (Version None)
Quarter: 2006Q3

REPORT INFORMATION
  Report Type: 
  Country: None (occurrence: None)
  Receive Date: 20060720
  Receipt Date: 20060720
  Transmission Date: 20061208
  Serious: No
  Sender: FDA-Public Use
  Company Number: None

PATIENT
  Sex: Female
  Weight: 54.4316 kg

DRUGS (1)
  1. LEVAQUIN [Suspect]
     Indication: PRODUCTIVE COUGH
     Dosage: 1 TABLET EVERY DAY PO
     Route: 048
     Dates: start: 20060703, end: 20060714

REACTIONS (2)
  - GAIT DISTURBANCE [None]
  - TENDONITIS [None]
